FAERS Safety Report 11326205 (Version 1)
Quarter: 2015Q3

REPORT INFORMATION
  Report Type: Spontaneous
  Country: JP (occurrence: JP)
  Receive Date: 20150731
  Receipt Date: 20150731
  Transmission Date: 20151125
  Serious: Yes (Death, Life-Threatening, Hospitalization, Other)
  Sender: FDA-Public Use
  Company Number: PHHY2014JP148707

PATIENT
  Age: 68 Year
  Sex: Female

DRUGS (3)
  1. AFINITOR [Suspect]
     Active Substance: EVEROLIMUS
     Indication: BREAST CANCER RECURRENT
     Dosage: 10 MG, QD
     Route: 048
     Dates: start: 20140908, end: 20141027
  2. EXEMESTANE. [Concomitant]
     Active Substance: EXEMESTANE
     Indication: BREAST CANCER RECURRENT
     Dosage: 25 MG, QD
     Route: 048
     Dates: start: 20140908
  3. AROMASIN [Concomitant]
     Active Substance: EXEMESTANE
     Indication: PRODUCT USED FOR UNKNOWN INDICATION
     Dosage: 25 MG, QD
     Route: 048
     Dates: end: 20141027

REACTIONS (10)
  - Interstitial lung disease [Fatal]
  - Cough [Fatal]
  - Productive cough [Fatal]
  - Suffocation feeling [Fatal]
  - Platelet count decreased [Unknown]
  - Dysphonia [Fatal]
  - Pleural effusion [Fatal]
  - Anaemia [Unknown]
  - Dyspnoea [Fatal]
  - Stomatitis [Recovering/Resolving]

NARRATIVE: CASE EVENT DATE: 20140911
